FAERS Safety Report 5590956-6 (Version None)
Quarter: 2007Q4

REPORT INFORMATION
  Report Type: 
  Country: None (occurrence: None)
  Receive Date: 20071212
  Receipt Date: 20071008
  Transmission Date: 20080405
  Serious: No
  Sender: FDA-Public Use
  Company Number: 2007RL000445

PATIENT
  Age: 62 Year
  Sex: Female
  Weight: 70.3075 kg

DRUGS (7)
  1. LOVAZA [Suspect]
     Indication: BLOOD CHOLESTEROL
     Dosage: 4 GM;QD;PO ; 1 GM;QD;PO
     Route: 048
     Dates: start: 20071001, end: 20071010
  2. LOVAZA [Suspect]
     Indication: BLOOD TRIGLYCERIDES INCREASED
     Dosage: 4 GM;QD;PO ; 1 GM;QD;PO
     Route: 048
     Dates: start: 20071001, end: 20071010
  3. LOVAZA [Suspect]
     Indication: BLOOD CHOLESTEROL
     Dosage: 4 GM;QD;PO ; 1 GM;QD;PO
     Route: 048
     Dates: start: 20071010
  4. LOVAZA [Suspect]
     Indication: BLOOD TRIGLYCERIDES INCREASED
     Dosage: 4 GM;QD;PO ; 1 GM;QD;PO
     Route: 048
     Dates: start: 20071010
  5. GLYBURIDE [Concomitant]
  6. ARANESP [Concomitant]
  7. BENICAR [Concomitant]

REACTIONS (7)
  - ABDOMINAL DISTENSION [None]
  - BLOOD URINE PRESENT [None]
  - GAIT DISTURBANCE [None]
  - LIMB DISCOMFORT [None]
  - OFF LABEL USE [None]
  - PAIN IN EXTREMITY [None]
  - POLLAKIURIA [None]
